FAERS Safety Report 24246266 (Version 2)
Quarter: 2024Q3

REPORT INFORMATION
  Report Type: Report from Study
  Country: ZA (occurrence: ZA)
  Receive Date: 20240825
  Receipt Date: 20240905
  Transmission Date: 20241017
  Serious: Yes (Other)
  Sender: NOVARTIS
  Company Number: ZA-002147023-NVSC2024ZA169131

PATIENT
  Age: 17 Year
  Sex: Female

DRUGS (3)
  1. COSENTYX [Suspect]
     Active Substance: SECUKINUMAB
     Indication: Juvenile idiopathic arthritis
     Dosage: 150 MG, QMO
     Route: 065
     Dates: start: 202301
  2. COSENTYX [Suspect]
     Active Substance: SECUKINUMAB
     Dosage: 75 MG, Q2W
     Route: 065
  3. METHOTREXATE [Concomitant]
     Active Substance: METHOTREXATE
     Indication: Product used for unknown indication
     Dosage: 20 MG
     Route: 065
     Dates: start: 202111

REACTIONS (5)
  - Enthesopathy [Unknown]
  - Depression [Unknown]
  - Pain in extremity [Unknown]
  - Back pain [Unknown]
  - Arthralgia [Unknown]

NARRATIVE: CASE EVENT DATE: 20240818
